FAERS Safety Report 25277056 (Version 1)
Quarter: 2025Q2

REPORT INFORMATION
  Report Type: Spontaneous
  Country: US (occurrence: US)
  Receive Date: 20250507
  Receipt Date: 20250507
  Transmission Date: 20250716
  Serious: No
  Sender: KARYOPHARM THERAPEUTICS
  Company Number: US-KARYOPHARM-2025KPT100230

PATIENT

DRUGS (21)
  1. SELINEXOR [Suspect]
     Active Substance: SELINEXOR
     Indication: Product used for unknown indication
     Route: 048
     Dates: start: 20250504
  2. ACYCLOVIR [Concomitant]
     Active Substance: ACYCLOVIR
  3. ATIVAN [Concomitant]
     Active Substance: LORAZEPAM
  4. ATOVAQUONE [Concomitant]
     Active Substance: ATOVAQUONE
  5. BUMEX [Concomitant]
     Active Substance: BUMETANIDE
  6. CIPROFLOXACIN [Concomitant]
     Active Substance: CIPROFLOXACIN
  7. CRESTOR [Concomitant]
     Active Substance: ROSUVASTATIN CALCIUM
  8. DARZALEX [Concomitant]
     Active Substance: DARATUMUMAB
  9. ELIQUIS [Concomitant]
     Active Substance: APIXABAN
  10. ERYTHROMYCIN [Concomitant]
     Active Substance: ERYTHROMYCIN
  11. LIDOCAINE [Concomitant]
     Active Substance: LIDOCAINE
  12. METAMIZOLE SODIUM [Concomitant]
     Active Substance: METAMIZOLE SODIUM
  13. METOPROLOL TARTRATE [Concomitant]
     Active Substance: METOPROLOL TARTRATE
  14. MORPHINE SULFATE [Concomitant]
     Active Substance: MORPHINE SULFATE
  15. MS CONTIN [Concomitant]
     Active Substance: MORPHINE SULFATE
  16. NYSTATIN [Concomitant]
     Active Substance: NYSTATIN
  17. PROCARDIA [Concomitant]
     Active Substance: NIFEDIPINE
  18. RAPAMUNE [Concomitant]
     Active Substance: SIROLIMUS
  19. TADALAFIL [Concomitant]
     Active Substance: TADALAFIL
  20. XGEVA [Concomitant]
     Active Substance: DENOSUMAB
  21. ZOFRAN [Concomitant]
     Active Substance: ONDANSETRON HYDROCHLORIDE

REACTIONS (1)
  - Abdominal discomfort [Unknown]

NARRATIVE: CASE EVENT DATE: 20250504
